FAERS Safety Report 7348305-9 (Version None)
Quarter: 2011Q1

REPORT INFORMATION
  Report Type: 
  Country: None (occurrence: None)
  Receive Date: 20110311
  Receipt Date: 20110301
  Transmission Date: 20110831
  Serious: Yes (Hospitalization)
  Sender: FDA-Public Use
  Company Number: US-ELI_LILLY_AND_COMPANY-US201102000596

PATIENT
  Sex: Female

DRUGS (7)
  1. OMEPRAZOLE [Concomitant]
     Indication: GASTROOESOPHAGEAL REFLUX DISEASE
  2. FORTEO [Suspect]
     Indication: OSTEOPOROSIS
     Dosage: 20 UG, DAILY (1/D)
     Dates: start: 20100601
  3. ASPIRIN [Concomitant]
     Indication: ANTICOAGULANT THERAPY
     Dosage: UNK, 2/D
  4. ASCORBIC ACID [Concomitant]
  5. FORTEO [Suspect]
     Dosage: 20 UG, DAILY (1/D)
  6. VITAMIN D [Concomitant]
  7. ANTIHYPERTENSIVES [Concomitant]

REACTIONS (9)
  - DYSPNOEA [None]
  - FALL [None]
  - EMPHYSEMA [None]
  - CONTUSION [None]
  - PALPITATIONS [None]
  - HEART RATE INCREASED [None]
  - POOR QUALITY SLEEP [None]
  - FATIGUE [None]
  - ARTERIOSCLEROSIS [None]
